FAERS Safety Report 16837590 (Version 1)
Quarter: 2019Q3

REPORT INFORMATION
  Report Type: Report from Study
  Country: None (occurrence: CA)
  Receive Date: 20190923
  Receipt Date: 20190923
  Transmission Date: 20191005
  Serious: Yes (Other)
  Sender: FDA-Public Use
  Company Number: CA-ABBVIE-19K-028-2933739-00

PATIENT
  Sex: Male

DRUGS (1)
  1. HUMIRA [Suspect]
     Active Substance: ADALIMUMAB
     Indication: CROHN^S DISEASE
     Route: 058
     Dates: start: 20070515

REACTIONS (13)
  - Memory impairment [Not Recovered/Not Resolved]
  - Suicide attempt [Recovered/Resolved]
  - Oral disorder [Unknown]
  - Abdominal injury [Not Recovered/Not Resolved]
  - Intestinal resection [Unknown]
  - Asthenia [Unknown]
  - Injection site discomfort [Not Recovered/Not Resolved]
  - Obstruction [Unknown]
  - Abdominal pain [Not Recovered/Not Resolved]
  - Mental disorder [Not Recovered/Not Resolved]
  - Poor quality sleep [Not Recovered/Not Resolved]
  - Depression [Unknown]
  - Abdominal discomfort [Not Recovered/Not Resolved]

NARRATIVE: CASE EVENT DATE: 2014
